FAERS Safety Report 9538040 (Version 2)
Quarter: 2014Q2

REPORT INFORMATION
  Report Type: Report from Study
  Country: US (occurrence: US)
  Receive Date: 20130920
  Receipt Date: 20140429
  Transmission Date: 20141212
  Serious: Yes (Hospitalization)
  Sender: FDA-Public Use
  Company Number: US-ROCHE-1278530

PATIENT
  Age: 57 Year
  Sex: Male

DRUGS (5)
  1. LUCENTIS [Suspect]
     Indication: PRODUCT USED FOR UNKNOWN INDICATION
     Route: 050
     Dates: start: 20130521
  2. INSULIN [Concomitant]
     Indication: DIABETES MELLITUS
  3. AMIODARONE [Concomitant]
  4. CLOPIDOGREL [Concomitant]
     Route: 065
     Dates: start: 201306
  5. ASPIRIN [Concomitant]
     Route: 065
     Dates: start: 201306

REACTIONS (1)
  - Myocardial infarction [Recovered/Resolved]
